FAERS Safety Report 9745762 (Version 3)
Quarter: 2017Q4

REPORT INFORMATION
  Report Type: Spontaneous
  Country: NO (occurrence: NO)
  Receive Date: 20131211
  Receipt Date: 20171226
  Transmission Date: 20180321
  Serious: Yes (Death, Life-Threatening)
  Sender: FDA-Public Use
  Company Number: PHHY2013NO141077

PATIENT
  Age: 20 Year
  Sex: Female

DRUGS (40)
  1. TRAMADOL. [Suspect]
     Active Substance: TRAMADOL
     Indication: DEPRESSION
  2. VIVAL [Suspect]
     Active Substance: DIAZEPAM
     Route: 065
  3. FORTE [Concomitant]
  4. ATARAX [Suspect]
     Active Substance: HYDROXYZINE HYDROCHLORIDE
     Indication: DEPRESSION
     Dosage: UNK UKN, UNK
     Route: 065
  5. CIPRALEX [Suspect]
     Active Substance: ESCITALOPRAM OXALATE
     Route: 065
  6. OXYNORM [Suspect]
     Active Substance: OXYCODONE HYDROCHLORIDE
     Route: 065
  7. OXYNORM [Suspect]
     Active Substance: OXYCODONE HYDROCHLORIDE
     Indication: DEPRESSION
  8. CIPRAMIL [Suspect]
     Active Substance: CITALOPRAM HYDROBROMIDE
     Indication: PRODUCT USED FOR UNKNOWN INDICATION
     Dosage: UNK UKN, UNK
     Route: 065
  9. LAMICTAL [Suspect]
     Active Substance: LAMOTRIGINE
     Indication: DEPRESSION
  10. SAROTEX [Suspect]
     Active Substance: AMITRIPTYLINE HYDROCHLORIDE
     Route: 065
  11. ORFIRIL [Suspect]
     Active Substance: VALPROATE SODIUM
     Route: 065
  12. RIVOTRIL [Suspect]
     Active Substance: CLONAZEPAM
     Route: 065
  13. REMERON [Suspect]
     Active Substance: MIRTAZAPINE
     Route: 065
  14. REMERON [Suspect]
     Active Substance: MIRTAZAPINE
     Indication: DEPRESSION
  15. IMOVANE [Suspect]
     Active Substance: ZOPICLONE
     Route: 048
  16. CATAPRESAN [Suspect]
     Active Substance: CLONIDINE
     Route: 065
  17. SEROQUEL [Suspect]
     Active Substance: QUETIAPINE FUMARATE
     Route: 065
  18. RIVOTRIL [Suspect]
     Active Substance: CLONAZEPAM
     Indication: DEPRESSION
  19. TRAMADOL. [Suspect]
     Active Substance: TRAMADOL
     Route: 065
  20. DIAZEPAM. [Suspect]
     Active Substance: DIAZEPAM
     Indication: PRODUCT USED FOR UNKNOWN INDICATION
     Route: 065
  21. ORFIRIL [Suspect]
     Active Substance: VALPROATE SODIUM
     Indication: DEPRESSION
  22. LEVOMEPROMAZINE MALEATE [Suspect]
     Active Substance: LEVOMEPROMAZINE MALEATE
     Indication: DEPRESSION
     Dosage: UNK UKN, UNK
     Route: 065
  23. VIVAL [Suspect]
     Active Substance: DIAZEPAM
     Indication: DEPRESSION
  24. TRUXAL [Suspect]
     Active Substance: CHLORPROTHIXENE
     Indication: PRODUCT USED FOR UNKNOWN INDICATION
  25. HYDROXYZINE [Suspect]
     Active Substance: HYDROXYZINE HYDROCHLORIDE
     Dosage: UNK UKN, UNK
     Route: 065
  26. NOZINAN [Suspect]
     Active Substance: LEVOMEPROMAZINE
     Indication: DEPRESSION
  27. NOBLIGAN [Suspect]
     Active Substance: TRAMADOL HYDROCHLORIDE
     Indication: DEPRESSION
  28. CIPRALEX [Suspect]
     Active Substance: ESCITALOPRAM OXALATE
     Indication: DEPRESSION
  29. CATAPRESAN [Suspect]
     Active Substance: CLONIDINE
     Indication: DEPRESSION
  30. CYANOCOBALAMIN. [Concomitant]
     Active Substance: CYANOCOBALAMIN
  31. TRUXAL [Suspect]
     Active Substance: CHLORPROTHIXENE
     Route: 065
  32. SAROTEX [Suspect]
     Active Substance: AMITRIPTYLINE HYDROCHLORIDE
     Indication: DEPRESSION
  33. PINEX FORTE [Suspect]
     Active Substance: ACETAMINOPHEN\CODEINE PHOSPHATE
     Route: 065
  34. PINEX FORTE [Suspect]
     Active Substance: ACETAMINOPHEN\CODEINE PHOSPHATE
     Indication: DEPRESSION
  35. IMOVANE [Suspect]
     Active Substance: ZOPICLONE
     Indication: DEPRESSION
     Route: 048
  36. SOBRIL [Suspect]
     Active Substance: OXAZEPAM
     Indication: PRODUCT USED FOR UNKNOWN INDICATION
     Route: 065
  37. LAMICTAL [Suspect]
     Active Substance: LAMOTRIGINE
     Route: 065
  38. NOBLIGAN [Suspect]
     Active Substance: TRAMADOL HYDROCHLORIDE
     Route: 065
  39. SEROQUEL [Suspect]
     Active Substance: QUETIAPINE FUMARATE
     Indication: DEPRESSION
  40. DIAMORPHINE [Concomitant]
     Active Substance: DIAMORPHINE

REACTIONS (2)
  - Completed suicide [Fatal]
  - Intentional self-injury [Unknown]

NARRATIVE: CASE EVENT DATE: 20121105
